FAERS Safety Report 6493439-4 (Version None)
Quarter: 2009Q4

REPORT INFORMATION
  Report Type: 
  Country: None (occurrence: None)
  Receive Date: 20091209
  Receipt Date: 20091202
  Transmission Date: 20100525
  Serious: Yes (Death)
  Sender: FDA-Public Use
  Company Number: 2009SP039547

PATIENT
  Age: 58 Year
  Sex: Female
  Weight: 59 kg

DRUGS (1)
  1. TEMODAL [Suspect]
     Indication: BRAIN NEOPLASM
     Dosage: 75 MG/M2; QD; PO
     Route: 048
     Dates: start: 20090919, end: 20091030

REACTIONS (4)
  - BONE MARROW FAILURE [None]
  - DECREASED APPETITE [None]
  - NAUSEA [None]
  - PYREXIA [None]
